FAERS Safety Report 6329050-5 (Version None)
Quarter: 2009Q3

REPORT INFORMATION
  Report Type: 
  Country: None (occurrence: None)
  Receive Date: 20090826
  Receipt Date: 20090817
  Transmission Date: 20100115
  Serious: Yes (Other)
  Sender: FDA-Public Use
  Company Number: PHHY2009CN22223

PATIENT
  Sex: Female

DRUGS (2)
  1. SEBIVO [Suspect]
     Dosage: ONE TABLET PER DAY
     Route: 048
     Dates: start: 20090401
  2. ADEFOVIR DIPIVOXIL KIT [Concomitant]

REACTIONS (4)
  - CAESAREAN SECTION [None]
  - DRUG EXPOSURE DURING PREGNANCY [None]
  - NORMAL NEWBORN [None]
  - PREMATURE SEPARATION OF PLACENTA [None]
